FAERS Safety Report 8978784 (Version 2)
Quarter: 2013Q1

REPORT INFORMATION
  Report Type: Spontaneous
  Country: IN (occurrence: IN)
  Receive Date: 20121221
  Receipt Date: 20130225
  Transmission Date: 20140127
  Serious: Yes (Other)
  Sender: FDA-Public Use
  Company Number: PHHY2012IN117009

PATIENT
  Sex: 0

DRUGS (13)
  1. CICLOSPORIN [Suspect]
     Route: 064
  2. AZATHIOPRINE [Suspect]
     Route: 064
  3. PREDNISONE [Suspect]
     Route: 064
  4. NIFEDIPINE [Suspect]
     Route: 064
  5. HYDROCORTISONE [Suspect]
     Route: 064
  6. RANITIDINE [Suspect]
     Route: 064
  7. METOCLOPRAMIDE [Suspect]
     Route: 064
  8. THIOPENTAL [Suspect]
     Route: 064
  9. SUCCINYLCHOLINE CHLORIDE [Suspect]
     Route: 064
  10. LIGNOCAINE [Suspect]
     Route: 064
  11. NITROUS OXIDE [Suspect]
     Route: 064
  12. ISOFLURANE [Suspect]
     Route: 064
  13. ATRACURIUM [Suspect]
     Route: 064

REACTIONS (3)
  - Foetal distress syndrome [Unknown]
  - Premature baby [Unknown]
  - Foetal exposure during pregnancy [Unknown]
